FAERS Safety Report 23751153 (Version 2)
Quarter: 2024Q3

REPORT INFORMATION
  Report Type: Spontaneous
  Country: US (occurrence: US)
  Receive Date: 20240417
  Receipt Date: 20240716
  Transmission Date: 20241017
  Serious: No
  Sender: BRISTOL MYERS SQUIBB
  Company Number: US-BRISTOL-MYERS SQUIBB COMPANY-2024-058950

PATIENT
  Age: 54 Year
  Sex: Male
  Weight: 88.1 kg

DRUGS (2)
  1. NULOJIX [Suspect]
     Active Substance: BELATACEPT
     Indication: Renal transplant
     Route: 042
     Dates: start: 202306
  2. NULOJIX [Suspect]
     Active Substance: BELATACEPT
     Route: 058
     Dates: start: 202306

REACTIONS (1)
  - Incorrect route of product administration [Unknown]
